FAERS Safety Report 22771439 (Version 2)
Quarter: 2025Q4

REPORT INFORMATION
  Report Type: Spontaneous
  Country: EU (occurrence: EU)
  Receive Date: 20230801
  Receipt Date: 20251112
  Transmission Date: 20260118
  Serious: Yes (Hospitalization)
  Sender: ACCORD
  Company Number: None

PATIENT
  Age: 81 Year
  Sex: Female
  Weight: 69 kg

DRUGS (12)
  1. DAPTOMYCIN [Suspect]
     Active Substance: DAPTOMYCIN
     Indication: Infection
     Dates: start: 20211217, end: 20211219
  2. GEMCITABINE [Suspect]
     Active Substance: GEMCITABINE
     Indication: Leiomyosarcoma
     Dates: start: 20211129, end: 20211213
  3. MEROPENEM [Suspect]
     Active Substance: MEROPENEM
     Indication: Infection
     Dates: start: 20211220, end: 20211222
  4. TAZOBACTAM SODIUM [Suspect]
     Active Substance: TAZOBACTAM SODIUM
     Indication: Infection
     Dates: start: 20211217, end: 20211220
  5. PIPERACILLIN SODIUM [Suspect]
     Active Substance: PIPERACILLIN SODIUM
     Indication: Infection
     Dates: start: 20211217, end: 20211220
  6. CHOLECALCIFEROL [Concomitant]
     Active Substance: CHOLECALCIFEROL
  7. ASPIRIN [Concomitant]
     Active Substance: ASPIRIN
  8. LANSOPRAZOLE [Concomitant]
     Active Substance: LANSOPRAZOLE
  9. METFORMIN [Concomitant]
     Active Substance: METFORMIN HYDROCHLORIDE
  10. IRBESARTAN [Concomitant]
     Active Substance: IRBESARTAN
  11. LIDOCAINE [Concomitant]
     Active Substance: LIDOCAINE
  12. PREGABALIN [Concomitant]
     Active Substance: PREGABALIN

REACTIONS (1)
  - Mixed liver injury [Unknown]

NARRATIVE: CASE EVENT DATE: 20211221
